FAERS Safety Report 23675139 (Version 1)
Quarter: 2024Q1

REPORT INFORMATION
  Report Type: Spontaneous
  Country: CA (occurrence: CA)
  Receive Date: 20240326
  Receipt Date: 20240326
  Transmission Date: 20240410
  Serious: Yes (Other)
  Sender: FDA-Public Use
  Company Number: CA-BRISTOL-MYERS SQUIBB COMPANY-2024-046553

PATIENT
  Age: 72 Year
  Sex: Female

DRUGS (2)
  1. PACLITAXEL [Suspect]
     Active Substance: PACLITAXEL
     Indication: Product used for unknown indication
  2. PACLITAXEL [Concomitant]
     Active Substance: PACLITAXEL
     Indication: Chemotherapy
     Dosage: LIQUID INTRAVENOUS
     Route: 040

REACTIONS (8)
  - Abdominal pain [Unknown]
  - Back pain [Unknown]
  - Depressed level of consciousness [Unknown]
  - Flushing [Unknown]
  - Hyperhidrosis [Unknown]
  - Pallor [Unknown]
  - Palpitations [Unknown]
  - Throat tightness [Unknown]
